FAERS Safety Report 23727739 (Version 1)
Quarter: 2024Q2

REPORT INFORMATION
  Report Type: Spontaneous
  Country: US (occurrence: US)
  Receive Date: 20240410
  Receipt Date: 20240410
  Transmission Date: 20240715
  Serious: No
  Sender: FDA-Public Use
  Company Number: US-AGILE THERAPEUTICS, INC.-US-AGI-2023-000727

PATIENT
  Age: 19 Year
  Sex: Female

DRUGS (2)
  1. TWIRLA [Suspect]
     Active Substance: ETHINYL ESTRADIOL\LEVONORGESTREL
     Indication: Polycystic ovaries
     Dosage: 120 MCG/DAY LEVONORGESTREL AND 30 MCG/DAY ETHINYL ESTRADIOL
     Route: 062
     Dates: start: 202309
  2. TWIRLA [Suspect]
     Active Substance: ETHINYL ESTRADIOL\LEVONORGESTREL
     Indication: Menstrual cycle management

REACTIONS (6)
  - Application site scar [Recovered/Resolved]
  - Administration site indentation [Recovered/Resolved]
  - Product adhesion issue [Recovered/Resolved]
  - Application site dryness [Recovered/Resolved]
  - Application site rash [Recovered/Resolved]
  - Off label use [Unknown]

NARRATIVE: CASE EVENT DATE: 20230901
